FAERS Safety Report 25717805 (Version 1)
Quarter: 2025Q3

REPORT INFORMATION
  Report Type: Spontaneous
  Country: EU (occurrence: EU)
  Receive Date: 20250822
  Receipt Date: 20250822
  Transmission Date: 20251021
  Serious: Yes (Hospitalization, Other)
  Sender: MYLAN
  Company Number: EU-CELLTRION INC.-2025DE02705

PATIENT
  Age: 72 Year
  Sex: Male
  Weight: 98 kg

DRUGS (76)
  1. LENALIDOMIDE [Suspect]
     Active Substance: LENALIDOMIDE
     Indication: Diffuse large B-cell lymphoma
     Dates: start: 20220209, end: 20220411
  2. LENALIDOMIDE [Suspect]
     Active Substance: LENALIDOMIDE
     Dates: start: 20220209, end: 20220411
  3. LENALIDOMIDE [Suspect]
     Active Substance: LENALIDOMIDE
     Route: 065
     Dates: start: 20220209, end: 20220411
  4. LENALIDOMIDE [Suspect]
     Active Substance: LENALIDOMIDE
     Route: 065
     Dates: start: 20220209, end: 20220411
  5. LENALIDOMIDE [Suspect]
     Active Substance: LENALIDOMIDE
  6. LENALIDOMIDE [Suspect]
     Active Substance: LENALIDOMIDE
  7. LENALIDOMIDE [Suspect]
     Active Substance: LENALIDOMIDE
     Route: 065
  8. LENALIDOMIDE [Suspect]
     Active Substance: LENALIDOMIDE
     Route: 065
  9. RITUXIMAB [Suspect]
     Active Substance: RITUXIMAB
     Indication: Diffuse large B-cell lymphoma
     Dates: start: 20220209, end: 20220418
  10. RITUXIMAB [Suspect]
     Active Substance: RITUXIMAB
     Dates: start: 20220209, end: 20220418
  11. RITUXIMAB [Suspect]
     Active Substance: RITUXIMAB
     Route: 065
     Dates: start: 20220209, end: 20220418
  12. RITUXIMAB [Suspect]
     Active Substance: RITUXIMAB
     Route: 065
     Dates: start: 20220209, end: 20220418
  13. RITUXIMAB [Suspect]
     Active Substance: RITUXIMAB
  14. RITUXIMAB [Suspect]
     Active Substance: RITUXIMAB
  15. RITUXIMAB [Suspect]
     Active Substance: RITUXIMAB
     Route: 065
  16. RITUXIMAB [Suspect]
     Active Substance: RITUXIMAB
     Route: 065
  17. TAFASITAMAB [Suspect]
     Active Substance: TAFASITAMAB
     Indication: Diffuse large B-cell lymphoma
     Dosage: 12 MILLIGRAM/KILOGRAM, QW (12 MG/KG, Q1W)
     Dates: start: 20220209, end: 20220411
  18. TAFASITAMAB [Suspect]
     Active Substance: TAFASITAMAB
     Dosage: 12 MILLIGRAM/KILOGRAM, QW (12 MG/KG, Q1W)
     Route: 042
     Dates: start: 20220209, end: 20220411
  19. TAFASITAMAB [Suspect]
     Active Substance: TAFASITAMAB
     Dosage: 12 MILLIGRAM/KILOGRAM, QW (12 MG/KG, Q1W)
     Route: 042
     Dates: start: 20220209, end: 20220411
  20. TAFASITAMAB [Suspect]
     Active Substance: TAFASITAMAB
     Dosage: 12 MILLIGRAM/KILOGRAM, QW (12 MG/KG, Q1W)
     Dates: start: 20220209, end: 20220411
  21. TAFASITAMAB [Suspect]
     Active Substance: TAFASITAMAB
     Indication: Diffuse large B-cell lymphoma
  22. TAFASITAMAB [Suspect]
     Active Substance: TAFASITAMAB
     Route: 065
  23. TAFASITAMAB [Suspect]
     Active Substance: TAFASITAMAB
     Route: 065
  24. TAFASITAMAB [Suspect]
     Active Substance: TAFASITAMAB
  25. CYCLOPHOSPHAMIDE [Suspect]
     Active Substance: CYCLOPHOSPHAMIDE
     Indication: Diffuse large B-cell lymphoma
     Dates: start: 20220209, end: 20220418
  26. CYCLOPHOSPHAMIDE [Suspect]
     Active Substance: CYCLOPHOSPHAMIDE
     Dates: start: 20220209, end: 20220418
  27. CYCLOPHOSPHAMIDE [Suspect]
     Active Substance: CYCLOPHOSPHAMIDE
     Route: 065
     Dates: start: 20220209, end: 20220418
  28. CYCLOPHOSPHAMIDE [Suspect]
     Active Substance: CYCLOPHOSPHAMIDE
     Route: 065
     Dates: start: 20220209, end: 20220418
  29. CYCLOPHOSPHAMIDE [Suspect]
     Active Substance: CYCLOPHOSPHAMIDE
  30. CYCLOPHOSPHAMIDE [Suspect]
     Active Substance: CYCLOPHOSPHAMIDE
  31. CYCLOPHOSPHAMIDE [Suspect]
     Active Substance: CYCLOPHOSPHAMIDE
     Route: 065
  32. CYCLOPHOSPHAMIDE [Suspect]
     Active Substance: CYCLOPHOSPHAMIDE
     Route: 065
  33. DOXORUBICIN [Suspect]
     Active Substance: DOXORUBICIN
     Indication: Diffuse large B-cell lymphoma
     Dates: start: 20220209, end: 20220418
  34. DOXORUBICIN [Suspect]
     Active Substance: DOXORUBICIN
     Dates: start: 20220209, end: 20220418
  35. DOXORUBICIN [Suspect]
     Active Substance: DOXORUBICIN
     Route: 065
     Dates: start: 20220209, end: 20220418
  36. DOXORUBICIN [Suspect]
     Active Substance: DOXORUBICIN
     Route: 065
     Dates: start: 20220209, end: 20220418
  37. DOXORUBICIN [Suspect]
     Active Substance: DOXORUBICIN
  38. DOXORUBICIN [Suspect]
     Active Substance: DOXORUBICIN
  39. DOXORUBICIN [Suspect]
     Active Substance: DOXORUBICIN
     Route: 065
  40. DOXORUBICIN [Suspect]
     Active Substance: DOXORUBICIN
     Route: 065
  41. VINCRISTINE [Suspect]
     Active Substance: VINCRISTINE
     Indication: Diffuse large B-cell lymphoma
     Dates: start: 20220209, end: 20220418
  42. VINCRISTINE [Suspect]
     Active Substance: VINCRISTINE
     Dates: start: 20220209, end: 20220418
  43. VINCRISTINE [Suspect]
     Active Substance: VINCRISTINE
     Route: 042
     Dates: start: 20220209, end: 20220418
  44. VINCRISTINE [Suspect]
     Active Substance: VINCRISTINE
     Route: 042
     Dates: start: 20220209, end: 20220418
  45. VINCRISTINE [Suspect]
     Active Substance: VINCRISTINE
  46. VINCRISTINE [Suspect]
     Active Substance: VINCRISTINE
  47. VINCRISTINE [Suspect]
     Active Substance: VINCRISTINE
     Route: 042
  48. VINCRISTINE [Suspect]
     Active Substance: VINCRISTINE
     Route: 042
  49. PREDNISOLONE [Suspect]
     Active Substance: PREDNISOLONE
     Indication: Diffuse large B-cell lymphoma
     Dates: start: 20220209, end: 20220418
  50. PREDNISOLONE [Suspect]
     Active Substance: PREDNISOLONE
     Dates: start: 20220209, end: 20220418
  51. PREDNISOLONE [Suspect]
     Active Substance: PREDNISOLONE
     Route: 065
     Dates: start: 20220209, end: 20220418
  52. PREDNISOLONE [Suspect]
     Active Substance: PREDNISOLONE
     Route: 065
     Dates: start: 20220209, end: 20220418
  53. PREDNISOLONE [Suspect]
     Active Substance: PREDNISOLONE
  54. PREDNISOLONE [Suspect]
     Active Substance: PREDNISOLONE
  55. PREDNISOLONE [Suspect]
     Active Substance: PREDNISOLONE
     Route: 065
  56. PREDNISOLONE [Suspect]
     Active Substance: PREDNISOLONE
     Route: 065
  57. LENOGRASTIM [Concomitant]
     Active Substance: LENOGRASTIM
     Indication: Prophylaxis
     Dosage: 34 MILLIGRAM, QD (34 MG DAILY )
     Dates: start: 20220212, end: 20220219
  58. LENOGRASTIM [Concomitant]
     Active Substance: LENOGRASTIM
     Dosage: 34 MILLIGRAM, QD (34 MG DAILY )
     Route: 058
     Dates: start: 20220212, end: 20220219
  59. LENOGRASTIM [Concomitant]
     Active Substance: LENOGRASTIM
     Dosage: 34 MILLIGRAM, QD (34 MG DAILY )
     Route: 058
     Dates: start: 20220212, end: 20220219
  60. LENOGRASTIM [Concomitant]
     Active Substance: LENOGRASTIM
     Dosage: 34 MILLIGRAM, QD (34 MG DAILY )
     Dates: start: 20220212, end: 20220219
  61. PEGFILGRASTIM [Concomitant]
     Active Substance: PEGFILGRASTIM
     Indication: Prophylaxis
  62. PEGFILGRASTIM [Concomitant]
     Active Substance: PEGFILGRASTIM
     Indication: Prophylaxis
  63. PEGFILGRASTIM [Concomitant]
     Active Substance: PEGFILGRASTIM
     Route: 058
  64. PEGFILGRASTIM [Concomitant]
     Active Substance: PEGFILGRASTIM
     Route: 058
  65. PEGFILGRASTIM [Concomitant]
     Active Substance: PEGFILGRASTIM
  66. PEGFILGRASTIM [Concomitant]
     Active Substance: PEGFILGRASTIM
  67. PEGFILGRASTIM [Concomitant]
     Active Substance: PEGFILGRASTIM
     Route: 058
  68. PEGFILGRASTIM [Concomitant]
     Active Substance: PEGFILGRASTIM
     Route: 058
  69. ACYCLOVIR [Concomitant]
     Active Substance: ACYCLOVIR
     Indication: Prophylaxis
     Dosage: 400 MILLIGRAM, QD (400 MG DAILY)
     Dates: start: 20220211
  70. ACYCLOVIR [Concomitant]
     Active Substance: ACYCLOVIR
     Dosage: 400 MILLIGRAM, QD (400 MG DAILY)
     Route: 048
     Dates: start: 20220211
  71. ACYCLOVIR [Concomitant]
     Active Substance: ACYCLOVIR
     Dosage: 400 MILLIGRAM, QD (400 MG DAILY)
     Route: 048
     Dates: start: 20220211
  72. ACYCLOVIR [Concomitant]
     Active Substance: ACYCLOVIR
     Dosage: 400 MILLIGRAM, QD (400 MG DAILY)
     Dates: start: 20220211
  73. COTRIM [Concomitant]
     Active Substance: SULFAMETHOXAZOLE\TRIMETHOPRIM
     Indication: Prophylaxis
     Dosage: 960 MILLIGRAM, QD (960 MG DAILY)
     Dates: start: 20220211
  74. COTRIM [Concomitant]
     Active Substance: SULFAMETHOXAZOLE\TRIMETHOPRIM
     Dosage: 960 MILLIGRAM, QD (960 MG DAILY)
     Route: 048
     Dates: start: 20220211
  75. COTRIM [Concomitant]
     Active Substance: SULFAMETHOXAZOLE\TRIMETHOPRIM
     Dosage: 960 MILLIGRAM, QD (960 MG DAILY)
     Route: 048
     Dates: start: 20220211
  76. COTRIM [Concomitant]
     Active Substance: SULFAMETHOXAZOLE\TRIMETHOPRIM
     Dosage: 960 MILLIGRAM, QD (960 MG DAILY)
     Dates: start: 20220211

REACTIONS (4)
  - Febrile neutropenia [Recovered/Resolved]
  - Hyperglycaemia [Recovered/Resolved]
  - COVID-19 [Recovered/Resolved]
  - Product use issue [Unknown]

NARRATIVE: CASE EVENT DATE: 20220316
